FAERS Safety Report 10463543 (Version 1)
Quarter: 2014Q3

REPORT INFORMATION
  Report Type: Spontaneous
  Country: US (occurrence: US)
  Receive Date: 20140919
  Receipt Date: 20140919
  Transmission Date: 20150326
  Serious: Yes (Hospitalization, Other)
  Sender: FDA-Public Use
  Company Number: US-DRREDDYS-USA/USA/14/0043019

PATIENT
  Age: 67 Year
  Sex: Male

DRUGS (1)
  1. DONEPEZIL HYDROCHLORIDE TABLETS [Suspect]
     Active Substance: DONEPEZIL HYDROCHLORIDE
     Indication: PRODUCT USED FOR UNKNOWN INDICATION
     Route: 065

REACTIONS (6)
  - Vomiting [Unknown]
  - Suicide attempt [Unknown]
  - Hyperhidrosis [Unknown]
  - Intentional overdose [Unknown]
  - Blood pressure increased [Unknown]
  - Bradycardia [Recovered/Resolved]
